FAERS Safety Report 5406693-4 (Version None)
Quarter: 2007Q3

REPORT INFORMATION
  Report Type: 
  Country: None (occurrence: None)
  Receive Date: 20070803
  Receipt Date: 20070803
  Transmission Date: 20080115
  Serious: No
  Sender: FDA-Public Use
  Company Number: None

PATIENT

DRUGS (2)
  1. ORENCIA [Suspect]
     Indication: RHEUMATOID ARTHRITIS
     Dosage: 750 MG Q4WEEKS IV
     Route: 042
     Dates: start: 20061117, end: 20070430
  2. ARAVA [Concomitant]

REACTIONS (6)
  - CONDITION AGGRAVATED [None]
  - HBV DNA INCREASED [None]
  - HEPATIC FUNCTION ABNORMAL [None]
  - HEPATITIS B [None]
  - HEPATITIS B E ANTIGEN POSITIVE [None]
  - LIVER FUNCTION TEST ABNORMAL [None]
